FAERS Safety Report 5285687-6 (Version None)
Quarter: 2007Q1

REPORT INFORMATION
  Report Type: 
  Country: None (occurrence: None)
  Receive Date: 20070126
  Receipt Date: 20060424
  Transmission Date: 20070707
  Serious: No
  Sender: FDA-Public Use
  Company Number: 2006CT001165

PATIENT
  Age: 66 Year
  Sex: Male
  Weight: 70 kg

DRUGS (20)
  1. VENTAVIS [Suspect]
     Indication: PULMONARY HYPERTENSION
     Dosage: SEE IMAGE
     Route: 055
     Dates: start: 20060328, end: 20060329
  2. VENTAVIS [Suspect]
     Indication: PULMONARY HYPERTENSION
     Dosage: SEE IMAGE
     Route: 055
     Dates: start: 20060330, end: 20060424
  3. ACCUPRIL [Concomitant]
  4. ADVAIR DISKUS 100/50 [Concomitant]
  5. ATACAND [Concomitant]
  6. COLACE [Concomitant]
  7. WARFARIN SODIUM [Concomitant]
  8. LASIX [Concomitant]
  9. TAMSULOSIN HCL [Concomitant]
  10. LEXAPRO [Concomitant]
  11. ATORVASTATIN CALCIUM [Concomitant]
  12. MIRTAZAPINE [Concomitant]
  13. AMLODIPINE [Concomitant]
  14. OXYGEN [Concomitant]
  15. POTASSIUM CHLORIDE [Concomitant]
  16. PREDNISONE [Concomitant]
  17. PREVACID [Concomitant]
  18. TIOTROPIUM BROMIDE [Concomitant]
  19. STELAZINE [Concomitant]
  20. XANAX [Concomitant]

REACTIONS (4)
  - BLOOD PRESSURE DECREASED [None]
  - DYSPNOEA [None]
  - FATIGUE [None]
  - NO THERAPEUTIC RESPONSE [None]
